FAERS Safety Report 8819814 (Version 2)
Quarter: 2012Q4

REPORT INFORMATION
  Report Type: 
  Country: CZ (occurrence: CZ)
  Receive Date: 20121001
  Receipt Date: 20121011
  Transmission Date: 20130627
  Serious: Yes (Other)
  Sender: FDA-Public Use
  Company Number: CZ-PFIZER INC-2012237056

PATIENT
  Age: 41 Year
  Sex: Female
  Weight: 72 kg

DRUGS (4)
  1. VENLAFAXINE HYDROCHLORIDE [Suspect]
     Dosage: 150 mg/day
  2. RIVOTRIL [Concomitant]
     Dosage: 1 mg/day
  3. MIABENE [Concomitant]
     Dosage: 60 mg/day
  4. ZYPREXA [Concomitant]
     Dosage: 10 mg/day

REACTIONS (1)
  - Toxicity to various agents [Recovered/Resolved]
